FAERS Safety Report 5231428-8 (Version None)
Quarter: 2007Q1

REPORT INFORMATION
  Report Type: 
  Country: None (occurrence: None)
  Receive Date: 20070206
  Receipt Date: 20070123
  Transmission Date: 20070707
  Serious: Yes (Death, Hospitalization, Other)
  Sender: FDA-Public Use
  Company Number: US-SHR-US-2006-040815

PATIENT
  Age: 51 Year
  Sex: Female

DRUGS (13)
  1. BETASERON [Suspect]
     Indication: SECONDARY PROGRESSIVE MULTIPLE SCLEROSIS
     Dosage: 8 MIU, EVERY 2D
     Route: 058
     Dates: start: 20040612, end: 20061101
  2. BETASERON [Suspect]
     Dosage: 8 MIU, EVERY 2D
     Route: 058
     Dates: end: 20061216
  3. ATENOLOL [Concomitant]
     Indication: HYPERTENSION
     Dosage: 100 MG, 1X/DAY
     Route: 048
  4. PREVACID [Concomitant]
     Indication: ANTACID THERAPY
     Dosage: 30 MG, 1X/DAY
     Route: 048
  5. EFFEXOR [Concomitant]
     Indication: DEPRESSION
     Dosage: 75 MG, 1X/DAY
     Route: 048
  6. LYRICA [Concomitant]
     Indication: NEURALGIA
     Dosage: UNK, AS REQ'D
  7. CRESTOR [Concomitant]
     Dosage: 10 MG, 1X/DAY
     Route: 048
  8. IMODIUM [Concomitant]
     Indication: CONSTIPATION
     Dosage: UNK, AS REQ'D
  9. CYMBALTA [Concomitant]
     Dosage: 30 MG, 1X/DAY
     Route: 048
  10. BENICAR [Concomitant]
     Dosage: 20 MG, 1X/DAY
  11. DETROL [Concomitant]
     Dosage: 4 MG, 1X/DAY
     Route: 048
  12. TIZANIDINE HCL [Concomitant]
     Dosage: 4 MG, 1X/DAY
     Route: 048
  13. ASPIRIN [Concomitant]
     Dosage: 81 MG, 1X/DAY
     Route: 048

REACTIONS (18)
  - ANOREXIA [None]
  - BRAIN STEM SYNDROME [None]
  - CEREBELLAR ATROPHY [None]
  - DYSKINESIA [None]
  - DYSPNOEA AT REST [None]
  - GAIT DISTURBANCE [None]
  - GENERAL PHYSICAL HEALTH DETERIORATION [None]
  - HYPERTONIA [None]
  - HYPOREFLEXIA [None]
  - MOBILITY DECREASED [None]
  - OEDEMA PERIPHERAL [None]
  - POVERTY OF SPEECH [None]
  - PRIMARY CEREBELLAR DEGENERATION [None]
  - PSYCHOMOTOR RETARDATION [None]
  - SPEECH DISORDER [None]
  - TREMOR [None]
  - URINARY INCONTINENCE [None]
  - UROSEPSIS [None]
